FAERS Safety Report 9826006 (Version 1)
Quarter: 2013Q4

REPORT INFORMATION
  Report Type: Spontaneous
  Country: US (occurrence: None)
  Receive Date: 20131028
  Receipt Date: 20131028
  Transmission Date: 20140711
  Serious: Yes (Other)
  Sender: FDA-Public Use
  Company Number: 2013US002236

PATIENT
  Age: 81 Year
  Sex: Male
  Weight: 75.03 kg

DRUGS (6)
  1. ICLUSIG (PONATINIB) TABLET, 15MG [Suspect]
     Indication: CHRONIC MYELOID LEUKAEMIA
     Route: 048
     Dates: start: 201307
  2. METOPROLOL (METOPROLOL) [Concomitant]
  3. AMLODIPINE (AMLODIPINE) [Concomitant]
  4. MAGNESIUM (MAGNESIUM) [Concomitant]
  5. ONDANSETRON HYDROCHLORIDE (ONDANSETRON HYDROCHLORIDE) [Concomitant]
  6. MAGNESIUM CITRATE (MAGNESIUM CITRATE) [Concomitant]

REACTIONS (1)
  - Neutropenia [None]
